FAERS Safety Report 14702036 (Version 2)
Quarter: 2018Q2

REPORT INFORMATION
  Report Type: Report from Study
  Country: SE (occurrence: SE)
  Receive Date: 20180331
  Receipt Date: 20180409
  Transmission Date: 20180711
  Serious: Yes (Other)
  Sender: FDA-Public Use
  Company Number: SE-ROCHE-2098934

PATIENT

DRUGS (5)
  1. RITUXIMAB. [Suspect]
     Active Substance: RITUXIMAB
     Indication: MANTLE CELL LYMPHOMA REFRACTORY
     Route: 065
  2. RITUXIMAB. [Suspect]
     Active Substance: RITUXIMAB
     Indication: MANTLE CELL LYMPHOMA REFRACTORY
     Dosage: CYCLE 1 DAY 1
     Route: 042
  3. LENALIDOMIDE [Suspect]
     Active Substance: LENALIDOMIDE
     Indication: MANTLE CELL LYMPHOMA REFRACTORY
     Dosage: DAYS (1-21) UPTO CYCLE 12
     Route: 048
  4. IBRUTINIB [Suspect]
     Active Substance: IBRUTINIB
     Dosage: DAY 1-56 (MAINTENANCE PHASE)
     Route: 048
  5. IBRUTINIB [Suspect]
     Active Substance: IBRUTINIB
     Indication: MANTLE CELL LYMPHOMA REFRACTORY
     Dosage: DAY (1-28) UPTO CYCLE 12 (INDUCTION PHASE)
     Route: 048

REACTIONS (1)
  - Cerebral haematoma [Recovered/Resolved]
